FAERS Safety Report 17835807 (Version 1)
Quarter: 2020Q2

REPORT INFORMATION
  Report Type: Report from Study
  Country: US (occurrence: US)
  Receive Date: 20200528
  Receipt Date: 20200528
  Transmission Date: 20200714
  Serious: Yes (Other)
  Sender: FDA-Public Use
  Company Number: US-PFIZER INC-2020207750

PATIENT

DRUGS (5)
  1. METHYLPREDNISOLONE ACETATE. [Suspect]
     Active Substance: METHYLPREDNISOLONE ACETATE
     Indication: LUMBOSACRAL RADICULOPATHY
     Dosage: 60 MG (3-ML SOLUTION CONTAINING 60 MG OF DEPO-METHYLPREDNISOLONE)
  2. SALINE [SODIUM CHLORIDE] [Suspect]
     Active Substance: SODIUM CHLORIDE
     Dosage: 1.5 ML (0.25%, AND 1.5 ML OF SALINE WAS ADMINISTERED)
  3. METHYLPREDNISOLONE ACETATE. [Suspect]
     Active Substance: METHYLPREDNISOLONE ACETATE
     Dosage: 60 MG (4-ML SOLUTION CONTAINING 60 MG OF DEPO-METHYLPREDNISOLONE)
  4. SALINE [SODIUM CHLORIDE] [Suspect]
     Active Substance: SODIUM CHLORIDE
     Indication: LUMBOSACRAL RADICULOPATHY
     Dosage: 0.5 ML (0.25%, AND 0.5 ML OF SALINE WAS INJECTED)
  5. BUPIVACAINE HCL [Suspect]
     Active Substance: BUPIVACAINE HYDROCHLORIDE
     Indication: LUMBOSACRAL RADICULOPATHY
     Dosage: 1 ML

REACTIONS (1)
  - Angina unstable [Unknown]
